FAERS Safety Report 14738061 (Version 2)
Quarter: 2018Q2

REPORT INFORMATION
  Report Type: Report from Study
  Country: FR (occurrence: FR)
  Receive Date: 20180409
  Receipt Date: 20180425
  Transmission Date: 20180711
  Serious: Yes (Death, Other)
  Sender: FDA-Public Use
  Company Number: FR-JAZZ-2018-FR-005422

PATIENT

DRUGS (3)
  1. NPLATE [Concomitant]
     Active Substance: ROMIPLOSTIM
     Indication: APLASIA
     Dosage: 10 ?G/KG, DAILY
     Dates: start: 20161117, end: 20170121
  2. DEFITELIO [Suspect]
     Active Substance: DEFIBROTIDE SODIUM
     Indication: VENOOCCLUSIVE DISEASE
     Dosage: 25 MG/KG, QD
     Route: 042
     Dates: start: 20161201
  3. GRANOCYTE [Concomitant]
     Active Substance: LENOGRASTIM
     Indication: APLASIA
     Dosage: 150 ?G, DAILY
     Route: 058
     Dates: start: 20161117, end: 20170121

REACTIONS (4)
  - Sinusitis aspergillus [Fatal]
  - Transplant failure [Fatal]
  - Cerebral aspergillosis [Fatal]
  - Bronchopulmonary aspergillosis [Fatal]

NARRATIVE: CASE EVENT DATE: 20170102
